FAERS Safety Report 8666239 (Version 5)
Quarter: 2013Q4

REPORT INFORMATION
  Report Type: Report from Study
  Country: CA (occurrence: CA)
  Receive Date: 20120716
  Receipt Date: 20131104
  Transmission Date: 20140711
  Serious: Yes (Other)
  Sender: FDA-Public Use
  Company Number: PHHY2012CA060485

PATIENT
  Age: 49 Year
  Sex: Female

DRUGS (10)
  1. GILENYA [Suspect]
     Indication: RELAPSING-REMITTING MULTIPLE SCLEROSIS
     Dosage: 0.5 MG, QD
     Route: 048
     Dates: start: 20120709
  2. GILENYA [Suspect]
     Dosage: 0.5 MG, QD
     Dates: start: 20131031
  3. VITAMIN B12 [Concomitant]
  4. VITAMIN D [Concomitant]
  5. FIORINAL [Concomitant]
  6. TYLENOL [Concomitant]
  7. MOTRIN [Concomitant]
  8. ADVACAL//CALCIUM [Concomitant]
  9. ADDITIVA MAGNESIUM//MAGNESIUM [Concomitant]
  10. OMEGA 3 [Concomitant]

REACTIONS (7)
  - Blood pressure decreased [Unknown]
  - Somnolence [Unknown]
  - Fatigue [Not Recovered/Not Resolved]
  - Nausea [Recovering/Resolving]
  - Abdominal discomfort [Recovered/Resolved]
  - Heart rate decreased [Unknown]
  - Back pain [Not Recovered/Not Resolved]
